FAERS Safety Report 11158047 (Version 4)
Quarter: 2015Q2

REPORT INFORMATION
  Report Type: Spontaneous
  Country: JP (occurrence: None)
  Receive Date: 20150601
  Receipt Date: 20150624
  Transmission Date: 20150821
  Serious: Yes (Hospitalization, Other)
  Sender: FDA-Public Use
  Company Number: ADR-2015-01056

PATIENT
  Age: 62 Year
  Sex: Male

DRUGS (2)
  1. GABALON INTRATHECAL [Suspect]
     Active Substance: BACLOFEN
     Indication: PARKINSON^S DISEASE
  2. NEODOPASTON [Suspect]
     Active Substance: CARBIDOPA\LEVODOPA

REACTIONS (15)
  - Urinary tract infection [None]
  - White blood cell count increased [None]
  - Pneumonia [None]
  - Blood sodium decreased [None]
  - Bacterial test positive [None]
  - Infection [None]
  - Neuroleptic malignant syndrome [None]
  - C-reactive protein increased [None]
  - Muscular weakness [None]
  - Bacillus test positive [None]
  - Drug effect decreased [None]
  - Performance status decreased [None]
  - Inappropriate antidiuretic hormone secretion [None]
  - Bedridden [None]
  - Somnambulism [None]
